FAERS Safety Report 25488781 (Version 1)
Quarter: 2025Q2

REPORT INFORMATION
  Report Type: Spontaneous
  Country: US (occurrence: US)
  Receive Date: 20250627
  Receipt Date: 20250627
  Transmission Date: 20250716
  Serious: Yes (Life-Threatening, Hospitalization, Other)
  Sender: ASTELLAS
  Company Number: US-ASTELLAS-2025-AER-035201

PATIENT
  Age: 10 Year
  Sex: Male

DRUGS (3)
  1. TACROLIMUS [Suspect]
     Active Substance: TACROLIMUS
     Indication: Renal transplant
     Route: 065
  2. MYCOPHENOLIC ACID [Concomitant]
     Active Substance: MYCOPHENOLIC ACID
     Indication: Renal transplant
     Route: 065
  3. PREDNISONE [Concomitant]
     Active Substance: PREDNISONE
     Indication: Renal transplant
     Route: 065

REACTIONS (9)
  - Rhinovirus infection [Recovering/Resolving]
  - Respiratory syncytial virus infection [Recovering/Resolving]
  - Pseudomonas infection [Recovering/Resolving]
  - Neutropenic sepsis [Recovering/Resolving]
  - Septic shock [Recovering/Resolving]
  - Staphylococcal infection [Recovering/Resolving]
  - Neutropenic colitis [Recovering/Resolving]
  - Epstein-Barr virus infection [Recovering/Resolving]
  - Burkitt^s leukaemia [Recovering/Resolving]
